FAERS Safety Report 6447964-2 (Version None)
Quarter: 2009Q4

REPORT INFORMATION
  Report Type: 
  Country: None (occurrence: None)
  Receive Date: 20091120
  Receipt Date: 20091111
  Transmission Date: 20100525
  Serious: Yes (Other)
  Sender: FDA-Public Use
  Company Number: US-JNJFOC-20091103636

PATIENT
  Sex: Female

DRUGS (3)
  1. REMICADE [Suspect]
     Route: 042
     Dates: start: 20080101, end: 20090701
  2. REMICADE [Suspect]
     Indication: RHEUMATOID ARTHRITIS
     Route: 042
     Dates: start: 20080101, end: 20090701
  3. PREDNISONE [Suspect]
     Indication: RHEUMATOID ARTHRITIS

REACTIONS (2)
  - IMPAIRED HEALING [None]
  - LIMB INJURY [None]
